FAERS Safety Report 16483158 (Version 5)
Quarter: 2019Q3

REPORT INFORMATION
  Report Type: Spontaneous
  Country: CH (occurrence: CH)
  Receive Date: 20190627
  Receipt Date: 20190717
  Transmission Date: 20191004
  Serious: Yes (Life-Threatening, Hospitalization, Other)
  Sender: FDA-Public Use
  Company Number: CH-PFIZER INC-2019273341

PATIENT
  Age: 19 Year
  Sex: Male

DRUGS (17)
  1. AMLODIPIN [Suspect]
     Active Substance: AMLODIPINE BESYLATE
     Indication: RAYNAUD^S PHENOMENON
     Dosage: 40 MG, SINGLE  (INTAKE IN SUICIDAL INTENTION AT ABOUT 15.00; IN TOTAL)
     Route: 048
     Dates: start: 20190211, end: 20190211
  2. PANTOZOL [Suspect]
     Active Substance: PANTOPRAZOLE SODIUM
     Dosage: 180 MG, SINGLE (INTAKE IN SUICIDAL INTENTION AT ABOUT 15.00; IN TOTAL)
     Route: 048
     Dates: start: 20190211, end: 20190211
  3. PANTOZOL [Suspect]
     Active Substance: PANTOPRAZOLE SODIUM
     Dosage: 20 MG, 1X/DAY
     Route: 048
  4. IRFEN [Suspect]
     Active Substance: IBUPROFEN
     Dosage: 400 MG, AS NEEDED
     Route: 048
  5. CATAPRESAN [CLONIDINE HYDROCHLORIDE] [Suspect]
     Active Substance: CLONIDINE HYDROCHLORIDE
     Dosage: 13.5 MILLIGRAM
     Route: 065
     Dates: start: 20190211
  6. STILNOX [Suspect]
     Active Substance: ZOLPIDEM TARTRATE
     Dosage: 12.5 MG, 1X/DAY
     Route: 048
  7. DAFALGAN [Suspect]
     Active Substance: ACETAMINOPHEN
     Dosage: 500 MG, AS NEEDED
     Route: 048
  8. NOVALGIN (METAMIZOLE SODIUM) [Suspect]
     Active Substance: METAMIZOLE SODIUM
     Dosage: 25 G, SINGLE  (INTAKE IN SUICIDAL INTENTION AT ABOUT 15.00; IN TOTAL)
     Route: 048
     Dates: start: 20190211, end: 20190211
  9. STILNOX [Suspect]
     Active Substance: ZOLPIDEM TARTRATE
     Dosage: 112.5 MG, SINGLE  (INTAKE IN SUICIDAL INTENTION AT ABOUT 15.00; IN TOTAL)
     Route: 048
     Dates: start: 20190211, end: 20190211
  10. TEMESTA (LORAZEPAM) [Suspect]
     Active Substance: LORAZEPAM
     Dosage: 1 MG, 1X/DAY
     Route: 048
  11. AMLODIPIN [Suspect]
     Active Substance: AMLODIPINE BESYLATE
     Dosage: 5 MG, AS NEEDED
     Route: 048
  12. PARACETAMOL [Suspect]
     Active Substance: ACETAMINOPHEN
     Dosage: 4 GRAM
     Route: 048
     Dates: start: 20190211, end: 20190211
  13. PARACETAMOL [Suspect]
     Active Substance: ACETAMINOPHEN
     Dosage: 500 MILLIGRAM
     Route: 048
  14. TEMESTA (LORAZEPAM) [Suspect]
     Active Substance: LORAZEPAM
     Dosage: 42 MG, SINGLE  (INTAKE IN SUICIDAL INTENTION AT ABOUT 15.00; IN TOTAL)
     Route: 048
     Dates: start: 20190211, end: 20190211
  15. IRFEN [Suspect]
     Active Substance: IBUPROFEN
     Dosage: 20 G, SINGLE (INTAKE IN SUICIDAL INTENTION AT ABOUT 15.00; IN TOTAL)
     Route: 048
     Dates: start: 20190211, end: 20190211
  16. DAFALGAN [Suspect]
     Active Substance: ACETAMINOPHEN
     Dosage: 4 G, SINGLE (INTAKE IN SUICIDAL INTENTION AT ABOUT 15.00; IN TOTAL)
     Route: 048
     Dates: start: 20190211, end: 20190211
  17. NEBIDO [Concomitant]
     Active Substance: TESTOSTERONE UNDECANOATE
     Indication: GENDER REASSIGNMENT THERAPY
     Dosage: 1 DF, EVERY 2 MONTHS (NUMBER OF UNITS IN THE INTEVAL: 2-3 MONTHS, LAST 22JAN2019)
     Route: 030
     Dates: start: 201708

REACTIONS (5)
  - Disturbance in attention [Recovered/Resolved]
  - Somnolence [Recovered/Resolved]
  - Intentional overdose [Recovered/Resolved]
  - Toxicity to various agents [Recovered/Resolved]
  - Coma [Recovered/Resolved]

NARRATIVE: CASE EVENT DATE: 20190211
